FAERS Safety Report 12359428 (Version 1)
Quarter: 2016Q2

REPORT INFORMATION
  Report Type: Spontaneous
  Country: US (occurrence: None)
  Receive Date: 20160511
  Receipt Date: 20160511
  Transmission Date: 20160815
  Serious: Yes (Death)
  Sender: FDA-Public Use
  Company Number: None

PATIENT
  Age: 59 Year
  Sex: Female
  Weight: 95.26 kg

DRUGS (3)
  1. DILAUDID [Concomitant]
     Active Substance: HYDROMORPHONE HYDROCHLORIDE
  2. HALDOL [Suspect]
     Active Substance: HALOPERIDOL
     Indication: AGITATION
     Dosage: 6 H  PRN
     Route: 042
     Dates: start: 20150213, end: 20150220
  3. ATIVAN [Concomitant]
     Active Substance: LORAZEPAM

REACTIONS (3)
  - Pneumonia [None]
  - Respiratory failure [None]
  - Overdose [None]

NARRATIVE: CASE EVENT DATE: 20150213
